FAERS Safety Report 9238733 (Version 1)
Quarter: 2013Q1

REPORT INFORMATION
  Report Type: Spontaneous
  Country: US (occurrence: None)
  Receive Date: 20121106
  Receipt Date: 20121106
  Transmission Date: 20140127
  Serious: No
  Sender: FDA-Public Use
  Company Number: 1000037343

PATIENT
  Age: 72 Year
  Sex: Male

DRUGS (9)
  1. DALRESP (ROFLUMIILAST) (TABLETS) [Suspect]
     Indication: CHRONIC OBSTRUCTIVE PULMONARY DISEASE
     Dosage: 1 IN 1 D
     Route: 048
     Dates: start: 20110911, end: 20111103
  2. DUONEB (IPRATROPIUM ALBUTEROL)(IPRATROPIUM ALBUTEROL) [Concomitant]
  3. HYTTRIN (TERZOSIN)(TERZOSIN) [Concomitant]
  4. OMPERAZOLE (OMEPRAZOLE) (OMEPRAZOLE) [Concomitant]
  5. FELODIPINE ER (FELODIPINE) (FELODIPINE) [Concomitant]
  6. LOSARTAN (LOSARTAN) (LOSARTAN) [Concomitant]
  7. PRAVASTATIN (PRAVASTATIN) (PRAVASTATIN) [Concomitant]
  8. PULMICORT (BUDESONIDE) (BUDESONIDE) [Concomitant]
  9. ASPIRIN (ACETYL SALICYLIC ACID) (ACETYL SALICYLIC ACID) [Concomitant]

REACTIONS (1)
  - Dizziness [None]
